FAERS Safety Report 22021046 (Version 1)
Quarter: 2023Q1

REPORT INFORMATION
  Report Type: Spontaneous
  Country: US (occurrence: US)
  Receive Date: 20230222
  Receipt Date: 20230222
  Transmission Date: 20230417
  Serious: Yes (Death)
  Sender: FDA-Public Use
  Company Number: US-SHIONOGI, INC-2023000260

PATIENT
  Age: 37 Year
  Sex: Male

DRUGS (3)
  1. FETROJA [Suspect]
     Active Substance: CEFIDEROCOL SULFATE TOSYLATE
     Indication: Pneumonia
     Dosage: 1.5 G, 12 HOUR
     Route: 042
  2. FETROJA [Suspect]
     Active Substance: CEFIDEROCOL SULFATE TOSYLATE
     Indication: Haematological infection
  3. FETROJA [Suspect]
     Active Substance: CEFIDEROCOL SULFATE TOSYLATE
     Indication: Acinetobacter infection

REACTIONS (3)
  - Death [Fatal]
  - Off label use [Unknown]
  - Drug ineffective for unapproved indication [Unknown]
